FAERS Safety Report 7138595-X (Version None)
Quarter: 2010Q4

REPORT INFORMATION
  Report Type: 
  Country: None (occurrence: None)
  Receive Date: 20101206
  Receipt Date: 20101127
  Transmission Date: 20110411
  Serious: Yes (Other)
  Sender: FDA-Public Use
  Company Number: DE-PFIZER INC-2010163842

PATIENT
  Age: 45 Year
  Sex: Female

DRUGS (4)
  1. ATARAX [Suspect]
     Dosage: 24 TABLETS; TOTAL AMOUNT: 600 MG
     Route: 048
  2. OPIPRAMOL [Suspect]
     Dosage: 50 TABLETS; TOTAL AMOUNT: 5000 MG
     Route: 048
  3. DOXEPIN HCL [Suspect]
     Dosage: 20 TABLETS; TOTAL AMOUNT: 100 MG
     Route: 048
  4. TRAMADOL [Suspect]
     Dosage: 10 TABLETS; TOTAL AMOUNT: 1500 MG
     Route: 048

REACTIONS (2)
  - INTENTIONAL OVERDOSE [None]
  - SUICIDE ATTEMPT [None]
